FAERS Safety Report 8400824-X (Version None)
Quarter: 2012Q2

REPORT INFORMATION
  Report Type: 
  Country: None (occurrence: None)
  Receive Date: 20120531
  Receipt Date: 20120529
  Transmission Date: 20120825
  Serious: Yes (Other)
  Sender: FDA-Public Use
  Company Number: US-ROCHE-1020305

PATIENT
  Sex: Female
  Weight: 66 kg

DRUGS (1)
  1. ZELBORAF [Suspect]
     Indication: MALIGNANT MELANOMA
     Route: 048
     Dates: start: 20110701

REACTIONS (9)
  - NEOPLASM [None]
  - VOMITING [None]
  - HEADACHE [None]
  - CONSTIPATION [None]
  - DIARRHOEA [None]
  - DECREASED APPETITE [None]
  - SUNBURN [None]
  - OEDEMA PERIPHERAL [None]
  - RASH [None]
